FAERS Safety Report 21412000 (Version 1)
Quarter: 2022Q4

REPORT INFORMATION
  Report Type: Spontaneous
  Country: US (occurrence: None)
  Receive Date: 20221004
  Receipt Date: 20221004
  Transmission Date: 20230112
  Serious: Yes (Other)
  Sender: FDA-Public Use
  Company Number: None

PATIENT
  Age: 78 Year
  Sex: Male
  Weight: 112.94 kg

DRUGS (2)
  1. POVIDONE IODINE PREP SOLUTION STERILE [Suspect]
     Active Substance: POVIDONE-IODINE
     Indication: Surgery
     Dates: start: 20220520, end: 20220520
  2. POVIDONE IODINE PREP SOLUTION STERILE [Suspect]
     Active Substance: POVIDONE-IODINE
     Indication: Arterial catheterisation

REACTIONS (5)
  - Throat irritation [None]
  - Application site pain [None]
  - Mental status changes [None]
  - Anaphylactic reaction [None]
  - Blood pressure decreased [None]

NARRATIVE: CASE EVENT DATE: 20220520
